FAERS Safety Report 17669006 (Version 1)
Quarter: 2020Q2

REPORT INFORMATION
  Report Type: Spontaneous
  Country: CN (occurrence: CN)
  Receive Date: 20200415
  Receipt Date: 20200415
  Transmission Date: 20200713
  Serious: Yes (Other)
  Sender: FDA-Public Use
  Company Number: CN-ROCHE-2581638

PATIENT
  Age: 48 Year
  Sex: Female

DRUGS (9)
  1. XELODA [Suspect]
     Active Substance: CAPECITABINE
     Dosage: DAY 1-14
     Route: 048
     Dates: start: 20170225
  2. AVASTIN [Suspect]
     Active Substance: BEVACIZUMAB
     Dosage: MAINTAIN THERAPY
     Route: 065
     Dates: start: 20171115
  3. FLUOROURACIL. [Concomitant]
     Active Substance: FLUOROURACIL
     Indication: RECTAL CANCER
     Dosage: 4300MG, 0.6G DAY1, CONTINUOUS INTRAVENOUS INFUSION, MAINTAIN FOR 46 HOURS
     Route: 065
     Dates: start: 20160531
  4. XELODA [Suspect]
     Active Substance: CAPECITABINE
     Dosage: 2 TABLETS IN THE MORNING, 3 TABLETS IN THE EVENING
     Route: 048
     Dates: start: 20160328
  5. AVASTIN [Suspect]
     Active Substance: BEVACIZUMAB
     Indication: RECTAL CANCER
     Dosage: DAY 1
     Route: 065
     Dates: start: 20170225
  6. OXALIPLATIN. [Concomitant]
     Active Substance: OXALIPLATIN
     Indication: RECTAL CANCER
     Dosage: DAY 1
     Route: 065
  7. OXALIPLATIN. [Concomitant]
     Active Substance: OXALIPLATIN
     Dosage: DAY 1
     Route: 065
     Dates: start: 20170225
  8. IRINOTECAN [Concomitant]
     Active Substance: IRINOTECAN
     Indication: RECTAL CANCER
     Dosage: DAY 1
     Route: 065
     Dates: start: 20160531
  9. XELODA [Suspect]
     Active Substance: CAPECITABINE
     Indication: RECTAL CANCER
     Dosage: DAY 1-14
     Route: 048

REACTIONS (3)
  - Drug intolerance [Unknown]
  - Pelvic fluid collection [Recovering/Resolving]
  - Bone marrow failure [Unknown]
